FAERS Safety Report 7414883-4 (Version None)
Quarter: 2011Q2

REPORT INFORMATION
  Report Type: 
  Country: None (occurrence: None)
  Receive Date: 20110414
  Receipt Date: 20101019
  Transmission Date: 20111010
  Serious: Yes (Life-Threatening, Hospitalization, Other)
  Sender: FDA-Public Use
  Company Number: US-BAYER-201029997NA

PATIENT
  Age: 35 Year
  Sex: Female
  Weight: 57.596 kg

DRUGS (13)
  1. ZINC [ZINC] [Concomitant]
  2. YAZ [Suspect]
     Indication: PREMENSTRUAL SYNDROME
  3. ATROPINE [Concomitant]
     Indication: HYPOTENSION
  4. SODIUM BICARBONATE [Concomitant]
     Dosage: UNK
  5. ASCORBIC ACID [Concomitant]
  6. ATROPINE [Concomitant]
     Indication: BRADYCARDIA
  7. POTASSIUM [POTASSIUM] [Concomitant]
  8. GLYCOPYRROLATE [Concomitant]
  9. NSAID'S [Concomitant]
  10. YAZ [Suspect]
     Indication: MUSCLE SPASMS
     Dosage: UNK
     Route: 048
     Dates: start: 20080701, end: 20080810
  11. ROBINUL [Concomitant]
  12. CALCIUM [CALCIUM] [Concomitant]
  13. PROTONIX [Concomitant]
     Dosage: UNK
     Dates: start: 20080801

REACTIONS (7)
  - CONVULSION [None]
  - ENDOTRACHEAL INTUBATION [None]
  - DEEP VEIN THROMBOSIS [None]
  - MECHANICAL VENTILATION [None]
  - PULMONARY EMBOLISM [None]
  - CARDIAC ARREST [None]
  - UNEVALUABLE EVENT [None]
